FAERS Safety Report 15100074 (Version 1)
Quarter: 2018Q3

REPORT INFORMATION
  Report Type: Report from Study
  Country: None (occurrence: CA)
  Receive Date: 20180703
  Receipt Date: 20180703
  Transmission Date: 20181010
  Serious: Yes (Hospitalization, Other)
  Sender: FDA-Public Use
  Company Number: CA-ABBVIE-18K-028-2404151-00

PATIENT
  Sex: Male

DRUGS (1)
  1. HUMIRA [Suspect]
     Active Substance: ADALIMUMAB
     Indication: PSORIASIS
     Route: 058
     Dates: start: 20071211

REACTIONS (10)
  - Overdose [Unknown]
  - Alcohol abuse [Unknown]
  - Drug screen [Unknown]
  - Fibromyalgia [Unknown]
  - Pain [Unknown]
  - Substance abuse [Unknown]
  - Psoriatic arthropathy [Unknown]
  - Alcohol poisoning [Unknown]
  - Rheumatoid arthritis [Unknown]
  - Dyspnoea [Unknown]

NARRATIVE: CASE EVENT DATE: 2018
